FAERS Safety Report 5715824-8 (Version None)
Quarter: 2008Q2

REPORT INFORMATION
  Report Type: 
  Country: None (occurrence: None)
  Receive Date: 20080424
  Receipt Date: 20080409
  Transmission Date: 20081010
  Serious: Yes (Hospitalization)
  Sender: FDA-Public Use
  Company Number: US-AMGEN-US273843

PATIENT
  Sex: Male

DRUGS (16)
  1. ARANESP [Suspect]
     Indication: RENAL FAILURE CHRONIC
     Route: 058
     Dates: start: 20060401, end: 20080331
  2. XANAX [Concomitant]
  3. CALCITRIOL [Concomitant]
  4. DIGOXIN [Concomitant]
  5. ISOSORBIDE DINITRATE [Concomitant]
  6. REGLAN [Concomitant]
  7. NITROGLYCERIN [Concomitant]
  8. PROTONIX [Concomitant]
  9. CARAFATE [Concomitant]
  10. FLOMAX [Concomitant]
  11. PILOCARPINE EYE DROPS [Concomitant]
  12. TIMOLOL MALEATE [Concomitant]
  13. COLACE [Concomitant]
  14. TYLENOL [Concomitant]
  15. MIRTAZAPINE [Concomitant]
  16. XOPENEX [Concomitant]

REACTIONS (4)
  - ANAEMIA [None]
  - DYSPNOEA [None]
  - IMPAIRED GASTRIC EMPTYING [None]
  - OCCULT BLOOD POSITIVE [None]
